FAERS Safety Report 10733865 (Version 2)
Quarter: 2015Q1

REPORT INFORMATION
  Report Type: Spontaneous
  Country: DE (occurrence: DE)
  Receive Date: 20150123
  Receipt Date: 20150205
  Transmission Date: 20150721
  Serious: Yes (Hospitalization, Other)
  Sender: FDA-Public Use
  Company Number: DE-TEVA-536255GER

PATIENT
  Age: 26 Year
  Sex: Female

DRUGS (5)
  1. PHENYTOIN. [Suspect]
     Active Substance: PHENYTOIN
     Indication: EPILEPSY
     Dosage: 400 MILLIGRAM DAILY;
     Route: 048
     Dates: start: 20140402, end: 20141126
  2. LEVETIRACETAM. [Suspect]
     Active Substance: LEVETIRACETAM
     Indication: EPILEPSY
     Dosage: 1500 MILLIGRAM DAILY;
     Route: 048
     Dates: start: 20140402, end: 20141126
  3. VALPROAT [Suspect]
     Active Substance: VALPROATE SODIUM
     Indication: EPILEPSY
     Dosage: 500 MILLIGRAM DAILY;
     Route: 048
     Dates: start: 20140402, end: 20141126
  4. CLOBAZAM [Suspect]
     Active Substance: CLOBAZAM
     Indication: EPILEPSY
     Dosage: 40 MILLIGRAM DAILY;
     Route: 064
     Dates: start: 20140402, end: 20141126
  5. BETAMETHASONE [Concomitant]
     Active Substance: BETAMETHASONE
     Indication: MATERNAL THERAPY TO ENHANCE FOETAL LUNG MATURITY
     Route: 030

REACTIONS (1)
  - Caesarean section [Recovered/Resolved]

NARRATIVE: CASE EVENT DATE: 201411
